FAERS Safety Report 20612035 (Version 1)
Quarter: 2022Q1

REPORT INFORMATION
  Report Type: Spontaneous
  Country: CN (occurrence: None)
  Receive Date: 20220318
  Receipt Date: 20220318
  Transmission Date: 20220424
  Serious: Yes (Hospitalization)
  Sender: FDA-Public Use
  Company Number: 2022A113403

PATIENT
  Age: 72 Year
  Sex: Female
  Weight: 62 kg

DRUGS (1)
  1. IRESSA [Suspect]
     Active Substance: GEFITINIB
     Indication: Lung carcinoma cell type unspecified stage 0
     Route: 048
     Dates: start: 20170803, end: 20220301

REACTIONS (2)
  - Skin infection [Recovering/Resolving]
  - Eczema [Recovering/Resolving]
